FAERS Safety Report 5990493-0 (Version None)
Quarter: 2008Q4

REPORT INFORMATION
  Report Type: 
  Country: None (occurrence: None)
  Receive Date: 20081211
  Receipt Date: 20081208
  Transmission Date: 20090506
  Serious: Yes (Disabling, Other)
  Sender: FDA-Public Use
  Company Number: CZ-AVENTIS-200814967GDDC

PATIENT
  Age: 57 Year
  Sex: Male

DRUGS (7)
  1. ARAVA [Suspect]
     Indication: RHEUMATOID ARTHRITIS
     Route: 048
     Dates: start: 20080215, end: 20080311
  2. PREDNISONE TAB [Concomitant]
     Indication: RHEUMATOID ARTHRITIS
     Route: 048
  3. METHOTREXATE [Concomitant]
     Indication: RHEUMATOID ARTHRITIS
     Route: 048
  4. IBUPROFEN TABLETS [Concomitant]
     Route: 048
  5. CALTRATE                           /00108001/ [Concomitant]
     Route: 048
  6. AMPRILAN [Concomitant]
     Route: 048
  7. OMEPRAZOLE [Concomitant]
     Route: 048

REACTIONS (3)
  - DERMATITIS ALLERGIC [None]
  - HEPATIC ENZYME INCREASED [None]
  - PRURITUS [None]
